FAERS Safety Report 10217907 (Version 4)
Quarter: 2015Q2

REPORT INFORMATION
  Report Type: Report from Study
  Country: BE (occurrence: BE)
  Receive Date: 20140605
  Receipt Date: 20150630
  Transmission Date: 20150821
  Serious: Yes (Life-Threatening, Hospitalization)
  Sender: FDA-Public Use
  Company Number: BE-ROCHE-792397

PATIENT
  Age: 74 Year
  Sex: Male
  Weight: 91.3 kg

DRUGS (40)
  1. BENDAMUSTINE [Suspect]
     Active Substance: BENDAMUSTINE
     Indication: NON-HODGKIN^S LYMPHOMA
     Dosage: DATE OF LAST DOSE PRIOR TO SAE: 22 AUGUST 2011.LAST DOSE OF BENDAMUSTINE TAKEN: 185.56MG, LAST DOSE:
     Route: 042
  2. ZYLORIC [Concomitant]
     Active Substance: ALLOPURINOL
     Route: 065
     Dates: start: 20111124
  3. LANOXIN [Concomitant]
     Active Substance: DIGOXIN
     Indication: ATRIAL FIBRILLATION
     Route: 065
     Dates: start: 20110823, end: 20110825
  4. AVELOX (MOXIFLOXACIN HYDROCHLORIDE) [Concomitant]
     Indication: COUGH
     Route: 065
     Dates: start: 201205, end: 20120530
  5. DAFALGAN [Concomitant]
     Active Substance: ACETAMINOPHEN
     Route: 065
     Dates: start: 20120822, end: 20120822
  6. ZOFRAN [Concomitant]
     Active Substance: ONDANSETRON HYDROCHLORIDE
     Route: 065
     Dates: start: 20110725, end: 20110728
  7. PARACODEINE [Concomitant]
     Indication: COUGH
     Route: 065
     Dates: start: 20120531, end: 20120726
  8. LITICAN [Concomitant]
     Active Substance: ALIZAPRIDE HYDROCHLORIDE
     Indication: PROPHYLAXIS OF NAUSEA AND VOMITING
     Route: 065
     Dates: start: 20110808, end: 20110808
  9. BELSAR [Concomitant]
     Active Substance: OLMESARTAN MEDOXOMIL
     Indication: HYPERTENSION
     Route: 065
     Dates: end: 20110824
  10. LITICAN [Concomitant]
     Active Substance: ALIZAPRIDE HYDROCHLORIDE
     Route: 065
     Dates: start: 20110822, end: 20110822
  11. EMCONCOR [Concomitant]
     Active Substance: BISOPROLOL FUMARATE
     Route: 065
     Dates: start: 20110825
  12. CLEXANE [Concomitant]
     Active Substance: ENOXAPARIN SODIUM
     Route: 065
     Dates: start: 20110824, end: 20110922
  13. ZOFRAN [Concomitant]
     Active Substance: ONDANSETRON HYDROCHLORIDE
     Route: 065
     Dates: start: 20110822, end: 20110825
  14. LITICAN [Concomitant]
     Active Substance: ALIZAPRIDE HYDROCHLORIDE
     Route: 065
     Dates: start: 20110725, end: 20110725
  15. ZYRTEC [Concomitant]
     Active Substance: CETIRIZINE HYDROCHLORIDE
     Indication: INFUSION RELATED REACTION
     Route: 065
     Dates: start: 20110725, end: 20110725
  16. DAFALGAN [Concomitant]
     Active Substance: ACETAMINOPHEN
     Indication: PYREXIA
     Route: 065
     Dates: start: 20110725, end: 20110725
  17. DAFALGAN [Concomitant]
     Active Substance: ACETAMINOPHEN
     Route: 065
     Dates: start: 20110808, end: 20110808
  18. LITICAN [Concomitant]
     Active Substance: ALIZAPRIDE HYDROCHLORIDE
     Route: 065
     Dates: start: 20110801, end: 20110801
  19. PERFUSALGAN [Concomitant]
     Active Substance: ACETAMINOPHEN
     Indication: PYREXIA
     Route: 065
     Dates: start: 20110823, end: 20110823
  20. MERONEM [Concomitant]
     Active Substance: MEROPENEM
     Indication: PYREXIA
     Route: 065
     Dates: start: 20110823, end: 20110826
  21. MAGNESIUM SULPHATE [Concomitant]
     Active Substance: MAGNESIUM SULFATE
     Route: 065
     Dates: start: 20110824, end: 20110824
  22. AVELOX (MOXIFLOXACIN HYDROCHLORIDE) [Concomitant]
     Route: 065
     Dates: start: 201207, end: 201207
  23. MOTILIUM [Concomitant]
     Active Substance: DOMPERIDONE
     Indication: NAUSEA
     Route: 065
     Dates: start: 201311, end: 20131112
  24. OBINUTUZUMAB [Suspect]
     Active Substance: OBINUTUZUMAB
     Indication: NON-HODGKIN^S LYMPHOMA
     Dosage: DOSE CONCENTRATION: 4 MG/ML. DATE OF MOST RECENT DOSE  PRIOR TO SAE: 22 AUGUST 2011, LAST DOSE: 25 J
     Route: 042
  25. DAFALGAN [Concomitant]
     Active Substance: ACETAMINOPHEN
     Indication: BACK PAIN
     Route: 065
     Dates: end: 20110816
  26. LITICAN [Concomitant]
     Active Substance: ALIZAPRIDE HYDROCHLORIDE
     Route: 065
     Dates: start: 20110808, end: 20110808
  27. ZANTAC [Concomitant]
     Active Substance: RANITIDINE HYDROCHLORIDE
     Route: 065
     Dates: start: 20110725, end: 20110725
  28. ZANTAC [Concomitant]
     Active Substance: RANITIDINE HYDROCHLORIDE
     Route: 065
     Dates: start: 20110823, end: 20120109
  29. TIMABAK [Concomitant]
     Indication: GLAUCOMA
     Route: 065
     Dates: start: 20110808, end: 20111205
  30. AMOXICILLIN. [Concomitant]
     Active Substance: AMOXICILLIN
     Indication: COUGH
     Route: 065
     Dates: start: 201207, end: 201207
  31. BELSAR [Concomitant]
     Active Substance: OLMESARTAN MEDOXOMIL
     Route: 065
     Dates: start: 20111005
  32. ZYLORIC [Concomitant]
     Active Substance: ALLOPURINOL
     Route: 065
     Dates: start: 20110725, end: 20110801
  33. DIPRIVAN [Concomitant]
     Active Substance: PROPOFOL
     Dosage: 1%
     Route: 065
     Dates: start: 20110825, end: 20110825
  34. ZYRTEC [Concomitant]
     Active Substance: CETIRIZINE HYDROCHLORIDE
     Route: 065
     Dates: start: 20120822, end: 20120822
  35. TERBINAFINE [Concomitant]
     Active Substance: TERBINAFINE
     Route: 065
     Dates: start: 201312
  36. DAFALGAN [Concomitant]
     Active Substance: ACETAMINOPHEN
     Route: 065
     Dates: start: 20110801, end: 20110801
  37. XALATAN [Concomitant]
     Active Substance: LATANOPROST
     Indication: GLAUCOMA
     Route: 065
     Dates: start: 201107, end: 20111205
  38. AMUKIN [Concomitant]
     Active Substance: AMIKACIN SULFATE
     Indication: PYREXIA
     Route: 065
     Dates: start: 20110823, end: 20110823
  39. ZYRTEC [Concomitant]
     Active Substance: CETIRIZINE HYDROCHLORIDE
     Route: 065
     Dates: start: 20120801, end: 20120801
  40. ZYRTEC [Concomitant]
     Active Substance: CETIRIZINE HYDROCHLORIDE
     Route: 065
     Dates: start: 20120808, end: 20120808

REACTIONS (5)
  - Anaphylactic shock [Recovered/Resolved]
  - Diarrhoea [Recovered/Resolved]
  - Infusion related reaction [Recovered/Resolved]
  - Infusion related reaction [Recovered/Resolved]
  - Atrial fibrillation [Recovered/Resolved]

NARRATIVE: CASE EVENT DATE: 20110725
